FAERS Safety Report 8307683-4 (Version None)
Quarter: 2012Q2

REPORT INFORMATION
  Report Type: 
  Country: None (occurrence: None)
  Receive Date: 20120424
  Receipt Date: 20120424
  Transmission Date: 20120825
  Serious: Yes (Life-Threatening)
  Sender: FDA-Public Use
  Company Number: None

PATIENT
  Age: 28 Year
  Sex: Male
  Weight: 117.93 kg

DRUGS (2)
  1. METFORMIN HCL [Suspect]
  2. TOPAMAX [Concomitant]

REACTIONS (5)
  - COLD SWEAT [None]
  - DRUG INTERACTION [None]
  - ASTHENIA [None]
  - DYSPNOEA [None]
  - FEELING ABNORMAL [None]
